FAERS Safety Report 22175945 (Version 2)
Quarter: 2023Q2

REPORT INFORMATION
  Report Type: Spontaneous
  Country: US (occurrence: US)
  Receive Date: 20230405
  Receipt Date: 20230410
  Transmission Date: 20230722
  Serious: Yes (Life-Threatening, Hospitalization, Other)
  Sender: FDA-Public Use
  Company Number: US-MLMSERVICE-20230317-4173816

PATIENT
  Age: 40 Year
  Sex: Male

DRUGS (21)
  1. DEXAMETHASONE [Suspect]
     Active Substance: DEXAMETHASONE
     Indication: Lower respiratory tract infection viral
     Dosage: UNK TAPER
     Route: 065
     Dates: start: 202203, end: 202204
  2. DEXAMETHASONE [Suspect]
     Active Substance: DEXAMETHASONE
     Indication: COVID-19
  3. VINCRISTINE SULFATE [Suspect]
     Active Substance: VINCRISTINE SULFATE
     Indication: Product used for unknown indication
     Dosage: UNK
     Route: 065
  4. CYCLOPHOSPHAMIDE [Suspect]
     Active Substance: CYCLOPHOSPHAMIDE
     Indication: Off label use
     Dosage: UNK
     Route: 065
  5. METHOTREXATE [Suspect]
     Active Substance: METHOTREXATE
     Indication: Off label use
     Dosage: UNK
  6. PREDNISONE [Suspect]
     Active Substance: PREDNISONE
     Indication: Organising pneumonia
     Dosage: 0.5 MILLIGRAM/KILOGRAM
     Route: 065
     Dates: start: 2022
  7. PREDNISONE [Suspect]
     Active Substance: PREDNISONE
     Indication: Bronchopulmonary aspergillosis
  8. PREDNISONE [Suspect]
     Active Substance: PREDNISONE
     Indication: COVID-19
  9. CYTARABINE [Suspect]
     Active Substance: CYTARABINE
     Indication: Off label use
     Dosage: UNK
     Route: 065
  10. DOXORUBICIN [Suspect]
     Active Substance: DOXORUBICIN
     Indication: Off label use
     Dosage: UNK
     Route: 065
  11. RITUXIMAB [Suspect]
     Active Substance: RITUXIMAB
     Indication: Off label use
     Dosage: UNK
     Route: 065
  12. OXYGEN [Concomitant]
     Active Substance: OXYGEN
     Indication: Lower respiratory tract infection viral
     Dosage: 10 LITER
     Route: 045
     Dates: start: 202204
  13. OXYGEN [Concomitant]
     Active Substance: OXYGEN
     Indication: COVID-19
     Dosage: 15 LITER
     Route: 065
     Dates: start: 202204
  14. OXYGEN [Concomitant]
     Active Substance: OXYGEN
     Dosage: 8 LITER
     Route: 045
     Dates: start: 202204
  15. OXYGEN [Concomitant]
     Active Substance: OXYGEN
     Dosage: 10 LITER
     Route: 045
     Dates: start: 202204
  16. OXYGEN [Concomitant]
     Active Substance: OXYGEN
     Dosage: 3 LITER
     Route: 045
     Dates: start: 2022
  17. OXYGEN [Concomitant]
     Active Substance: OXYGEN
     Dosage: 2 LITER
     Route: 045
     Dates: start: 2022
  18. OXYGEN [Concomitant]
     Active Substance: OXYGEN
     Dosage: 4 LITER
     Route: 045
     Dates: start: 2022
  19. OXYGEN [Concomitant]
     Active Substance: OXYGEN
     Dosage: 8 LITER
     Route: 045
     Dates: start: 2022
  20. REMDESIVIR [Concomitant]
     Active Substance: REMDESIVIR
     Indication: COVID-19
     Dosage: UNK
     Route: 042
     Dates: start: 202203
  21. REMDESIVIR [Concomitant]
     Active Substance: REMDESIVIR
     Indication: Lower respiratory tract infection viral

REACTIONS (6)
  - COVID-19 pneumonia [Recovered/Resolved]
  - SARS-CoV-2 RNA increased [Recovered/Resolved]
  - Off label use [Unknown]
  - Drug ineffective [Unknown]
  - SARS-CoV-2 viraemia [Recovered/Resolved]
  - Bronchopulmonary aspergillosis [Recovered/Resolved]

NARRATIVE: CASE EVENT DATE: 20220101
